FAERS Safety Report 12979157 (Version 6)
Quarter: 2018Q2

REPORT INFORMATION
  Report Type: Spontaneous
  Country: FR (occurrence: FR)
  Receive Date: 20161128
  Receipt Date: 20180523
  Transmission Date: 20180711
  Serious: Yes (Other)
  Sender: FDA-Public Use
  Company Number: FR-GLAXOSMITHKLINE-FR2016GSK175031

PATIENT
  Age: 24 Year
  Sex: Female

DRUGS (6)
  1. FLUOXETINE [Concomitant]
     Active Substance: FLUOXETINE HYDROCHLORIDE
     Indication: PRODUCT USED FOR UNKNOWN INDICATION
     Dosage: UNK
  2. CYAMEMAZINE [Concomitant]
     Active Substance: CYAMEMAZINE
     Indication: PRODUCT USED FOR UNKNOWN INDICATION
     Dosage: UNK
  3. NICOTINE. [Suspect]
     Active Substance: NICOTINE
     Indication: PRODUCT USED FOR UNKNOWN INDICATION
     Dosage: UNK
     Route: 005
  4. OXAZEPAM. [Concomitant]
     Active Substance: OXAZEPAM
     Indication: PRODUCT USED FOR UNKNOWN INDICATION
     Dosage: UNK
  5. ARIPIPRAZOLE. [Concomitant]
     Active Substance: ARIPIPRAZOLE
     Indication: PRODUCT USED FOR UNKNOWN INDICATION
     Dosage: UNK
  6. PREGABALIN. [Interacting]
     Active Substance: PREGABALIN
     Indication: ANXIETY
     Dosage: 300 MILLIGRAMS DAILY
     Route: 048
     Dates: start: 2012

REACTIONS (21)
  - Dependence [Unknown]
  - Tremor [Unknown]
  - Drug abuse [Unknown]
  - Mental disorder [Unknown]
  - Anxiety [Unknown]
  - Nicotine dependence [Unknown]
  - Drug dependence [Recovered/Resolved]
  - Asthenia [Unknown]
  - Prescription drug used without a prescription [Unknown]
  - Drug interaction [Unknown]
  - Drug tolerance [Unknown]
  - Thinking abnormal [Recovered/Resolved]
  - Hyperhidrosis [Unknown]
  - Substance use [Unknown]
  - Withdrawal syndrome [Unknown]
  - Intentional product misuse [Unknown]
  - Impaired quality of life [Unknown]
  - Euphoric mood [Unknown]
  - Insomnia [Unknown]
  - Suicidal ideation [Unknown]
  - Drug use disorder [Unknown]
